FAERS Safety Report 7911901-1 (Version None)
Quarter: 2011Q4

REPORT INFORMATION
  Report Type: 
  Country: None (occurrence: None)
  Receive Date: 20111114
  Receipt Date: 20111103
  Transmission Date: 20120403
  Serious: No
  Sender: FDA-Public Use
  Company Number: DE-UCBSA-042911

PATIENT
  Age: 43 Year
  Sex: Male

DRUGS (2)
  1. KEPPRA [Concomitant]
     Indication: EPILEPSY
     Route: 048
     Dates: start: 20100929
  2. VIMPAT [Suspect]
     Indication: EPILEPSY
     Route: 048
     Dates: start: 20100617

REACTIONS (2)
  - BLOOD UREA INCREASED [None]
  - BLOOD CREATININE INCREASED [None]
